FAERS Safety Report 6576636-9 (Version None)
Quarter: 2010Q1

REPORT INFORMATION
  Report Type: 
  Country: None (occurrence: None)
  Receive Date: 20100210
  Receipt Date: 20100201
  Transmission Date: 20100710
  Serious: Yes (Hospitalization)
  Sender: FDA-Public Use
  Company Number: US-PFIZER INC-2010014018

PATIENT
  Sex: Male
  Weight: 74.389 kg

DRUGS (5)
  1. SUTENT [Suspect]
     Indication: SARCOMA
     Dosage: 50 MG, 1X/DAY
     Route: 048
     Dates: start: 20090812
  2. POTASSIUM [Concomitant]
     Dosage: UNK
  3. MAGNESIUM [Concomitant]
     Dosage: UNK
  4. ZOCOR [Concomitant]
     Dosage: UNK
  5. NORVASC [Concomitant]
     Dosage: UNK

REACTIONS (2)
  - ABDOMINAL DISTENSION [None]
  - DIARRHOEA [None]
